FAERS Safety Report 24700331 (Version 1)
Quarter: 2024Q4

REPORT INFORMATION
  Report Type: Spontaneous
  Country: KR (occurrence: KR)
  Receive Date: 20241205
  Receipt Date: 20241205
  Transmission Date: 20250115
  Serious: No
  Sender: ALKEM
  Company Number: KR-ALKEM LABORATORIES LIMITED-KR-ALKEM-2024-05671

PATIENT
  Sex: Female

DRUGS (2)
  1. METFORMIN HYDROCHLORIDE [Suspect]
     Active Substance: METFORMIN HYDROCHLORIDE
     Indication: Type 2 diabetes mellitus
     Dosage: UNK
     Route: 065
  2. ENAVOGLIFLOZIN [Suspect]
     Active Substance: ENAVOGLIFLOZIN
     Indication: Type 2 diabetes mellitus
     Dosage: 0.3 MG/DAY
     Route: 065

REACTIONS (1)
  - Vaginal infection [Unknown]
